FAERS Safety Report 23895792 (Version 1)
Quarter: 2024Q2

REPORT INFORMATION
  Report Type: Spontaneous
  Country: US (occurrence: None)
  Receive Date: 20240523
  Receipt Date: 20240523
  Transmission Date: 20240716
  Serious: Yes (Hospitalization)
  Sender: FDA-Public Use
  Company Number: None

PATIENT
  Age: 73 Year
  Sex: Female

DRUGS (1)
  1. LENALIDOMIDE [Suspect]
     Active Substance: LENALIDOMIDE
     Indication: Plasma cell myeloma
     Dosage: OTHER FREQUENCY : 1 DAILY 21 D/OFF 7;?
     Route: 048
     Dates: start: 202401

REACTIONS (3)
  - Pain [None]
  - Gait disturbance [None]
  - Parkinson^s disease [None]

NARRATIVE: CASE EVENT DATE: 20240430
